FAERS Safety Report 18762535 (Version 1)
Quarter: 2021Q1

REPORT INFORMATION
  Report Type: Spontaneous
  Country: FR (occurrence: FR)
  Receive Date: 20210120
  Receipt Date: 20210120
  Transmission Date: 20210419
  Serious: Yes (Hospitalization, Other)
  Sender: FDA-Public Use
  Company Number: FR-PFIZER INC-2021027919

PATIENT
  Age: 71 Year
  Sex: Male
  Weight: 65.6 kg

DRUGS (8)
  1. PARACETAMOL [Concomitant]
     Active Substance: ACETAMINOPHEN
     Dosage: 2 G, 1X/DAY
     Route: 048
  2. RAMIPRIL. [Concomitant]
     Active Substance: RAMIPRIL
     Dosage: 5 MG, 1X/DAY
     Route: 048
  3. ALLOPURINOL. [Concomitant]
     Active Substance: ALLOPURINOL
     Dosage: 100 MG, 1X/DAY
     Route: 048
  4. IMETH [Suspect]
     Active Substance: METHOTREXATE SODIUM
     Indication: PRURITUS
     Dosage: STRENGTH: 10 MG
     Route: 048
     Dates: start: 20201013, end: 20201201
  5. PANTOPRAZOLE [Concomitant]
     Active Substance: PANTOPRAZOLE
     Dosage: 40 MG, 1X/DAY
     Route: 048
  6. SALBUTAMOL [Concomitant]
     Active Substance: ALBUTEROL
     Dosage: 2 DF
     Route: 055
  7. PAROXETINE. [Concomitant]
     Active Substance: PAROXETINE
     Dosage: 20 MG, 1X/DAY
     Route: 048
  8. CETIRIZINE HYDROCHLORIDE. [Concomitant]
     Active Substance: CETIRIZINE HYDROCHLORIDE
     Dosage: 1 DF
     Route: 048
     Dates: end: 20201201

REACTIONS (9)
  - Product use in unapproved indication [Unknown]
  - Product administration error [Recovering/Resolving]
  - Glossitis [Recovering/Resolving]
  - Product prescribing error [Recovering/Resolving]
  - Incorrect dosage administered [Recovering/Resolving]
  - Ecchymosis [Recovering/Resolving]
  - Product use issue [Unknown]
  - Product dispensing error [Recovering/Resolving]
  - Stomatitis [Recovering/Resolving]

NARRATIVE: CASE EVENT DATE: 20201013
